FAERS Safety Report 14654796 (Version 3)
Quarter: 2018Q2

REPORT INFORMATION
  Report Type: Spontaneous
  Country: ES (occurrence: ES)
  Receive Date: 20180319
  Receipt Date: 20180627
  Transmission Date: 20180711
  Serious: Yes (Hospitalization, Other)
  Sender: FDA-Public Use
  Company Number: ES-BRACCO-2018ES01309

PATIENT
  Age: 65 Year
  Sex: Male

DRUGS (1)
  1. IOPAMIRO [Suspect]
     Active Substance: IOPAMIDOL
     Indication: COMPUTERISED TOMOGRAM
     Dosage: 110 ML, SINGLE, AT A SPEED 3 ML/S
     Route: 042
     Dates: start: 20180130, end: 20180130

REACTIONS (4)
  - Laryngeal oedema [Recovered/Resolved]
  - Drug hypersensitivity [Recovered/Resolved]
  - Bronchospasm [Recovered/Resolved]
  - Dizziness [Recovered/Resolved]

NARRATIVE: CASE EVENT DATE: 20180130
